FAERS Safety Report 5094325-7 (Version None)
Quarter: 2006Q3

REPORT INFORMATION
  Report Type: 
  Country: None (occurrence: None)
  Receive Date: 20060830
  Receipt Date: 20060830
  Transmission Date: 20061208
  Serious: Yes (Life-Threatening, Hospitalization)
  Sender: FDA-Public Use
  Company Number: None

PATIENT
  Sex: Female
  Weight: 52 kg

DRUGS (14)
  1. IRINOTECAN HCL [Suspect]
     Indication: OESOPHAGEAL CARCINOMA
     Dosage: 50 IV
     Route: 042
     Dates: start: 20060710, end: 20060717
  2. CISPLATIN [Suspect]
     Indication: OESOPHAGEAL CARCINOMA
     Dosage: 30 IV
     Route: 042
     Dates: start: 20060710, end: 20060720
  3. CETUXIMAB (MG/M2), WK 1-9, WK 15-44 [Suspect]
     Indication: OESOPHAGEAL CARCINOMA
     Dosage: 250*  IV   SEE IMAGE
     Route: 042
     Dates: start: 20060710, end: 20060717
  4. XRT, D1-5, WK 2-7 [Suspect]
     Indication: OESOPHAGEAL CARCINOMA
     Dosage: 180GCY
     Dates: start: 20060710, end: 20060720
  5. MIRALAX [Concomitant]
  6. FOSAMAX [Concomitant]
  7. ATIVAN [Concomitant]
  8. CLINDAGEL [Concomitant]
  9. CLONAZEPAM [Concomitant]
  10. COMPAZINE [Concomitant]
  11. IMODIUM [Concomitant]
  12. REGLAN [Concomitant]
  13. VITAMIN B-12 [Concomitant]
  14. ZOFRAN [Concomitant]

REACTIONS (12)
  - ANOREXIA [None]
  - ASTHENIA [None]
  - DEHYDRATION [None]
  - FATIGUE [None]
  - INCONTINENCE [None]
  - LEUKOPENIA [None]
  - MALNUTRITION [None]
  - NAUSEA [None]
  - NEUTROPHIL COUNT ABNORMAL [None]
  - OESOPHAGITIS [None]
  - PYREXIA [None]
  - WEIGHT DECREASED [None]
